FAERS Safety Report 24746780 (Version 1)
Quarter: 2024Q4

REPORT INFORMATION
  Report Type: Spontaneous
  Country: CH (occurrence: CH)
  Receive Date: 20241218
  Receipt Date: 20241218
  Transmission Date: 20250114
  Serious: Yes (Other)
  Sender: ROCHE
  Company Number: CH-ROCHE-10000157379

PATIENT
  Age: 53 Year
  Sex: Male
  Weight: 112.2 kg

DRUGS (7)
  1. ATEZOLIZUMAB [Suspect]
     Active Substance: ATEZOLIZUMAB
     Indication: Hepatocellular carcinoma
     Route: 042
     Dates: start: 20240812
  2. BEVACIZUMAB [Suspect]
     Active Substance: BEVACIZUMAB
     Indication: Hepatocellular carcinoma
     Route: 042
     Dates: start: 20240812
  3. LOPERAMIDE HYDROCHLORIDE [Concomitant]
     Active Substance: LOPERAMIDE HYDROCHLORIDE
     Indication: Diarrhoea
  4. Paspertin [Concomitant]
     Indication: Nausea
  5. XGEVA [Concomitant]
     Active Substance: DENOSUMAB
     Route: 058
  6. ZOFRAN [Concomitant]
     Active Substance: ONDANSETRON HYDROCHLORIDE
     Indication: Nausea
  7. GLANDOMED [Concomitant]
     Dosage: MULTIPLE TIMES PER DAY

REACTIONS (2)
  - Metastases to bone [Unknown]
  - Off label use [Unknown]
